FAERS Safety Report 9084517 (Version 1)
Quarter: 2013Q1

REPORT INFORMATION
  Report Type: Spontaneous
  Country: NL (occurrence: NL)
  Receive Date: 20130131
  Receipt Date: 20130131
  Transmission Date: 20140127
  Serious: Yes (Hospitalization)
  Sender: FDA-Public Use
  Company Number: NL-JNJFOC-20130112213

PATIENT
  Sex: Female

DRUGS (3)
  1. TRISPORAL [Suspect]
     Indication: ONYCHOMYCOSIS
     Dosage: PULSE THERAPY
     Route: 065
     Dates: start: 20121208, end: 20130114
  2. AMLODIPINE  BESILATE [Concomitant]
     Route: 065
     Dates: start: 20061114
  3. SIMVASTATINE [Concomitant]
     Route: 065
     Dates: start: 20090929

REACTIONS (1)
  - Atrial fibrillation [Recovered/Resolved]
